FAERS Safety Report 5946843-4 (Version None)
Quarter: 2008Q4

REPORT INFORMATION
  Report Type: 
  Country: None (occurrence: None)
  Receive Date: 20081107
  Receipt Date: 20081107
  Transmission Date: 20090506
  Serious: Yes (Hospitalization)
  Sender: FDA-Public Use
  Company Number: None

PATIENT
  Sex: Male

DRUGS (4)
  1. REVLIMID [Suspect]
     Dosage: 25MG DAILY ORALLY
     Route: 048
     Dates: start: 20081021, end: 20081102
  2. FAMOTIDINE [Concomitant]
  3. INSULIN [Concomitant]
  4. ASPIRIN [Concomitant]

REACTIONS (4)
  - FATIGUE [None]
  - GAIT DISTURBANCE [None]
  - MUSCULAR WEAKNESS [None]
  - TREMOR [None]
